FAERS Safety Report 5167628-5 (Version None)
Quarter: 2006Q4

REPORT INFORMATION
  Report Type: 
  Country: None (occurrence: None)
  Receive Date: 20061207
  Receipt Date: 20060522
  Transmission Date: 20070319
  Serious: Yes (Hospitalization, Other)
  Sender: FDA-Public Use
  Company Number: NO-ABBOTT-06P-122-0334243-00

PATIENT
  Sex: Female

DRUGS (4)
  1. REDUCTIL 10MG [Suspect]
     Indication: WEIGHT CONTROL
     Route: 048
     Dates: start: 20060419, end: 20060424
  2. TIBOLONE [Concomitant]
     Indication: HOT FLUSH
     Route: 048
     Dates: start: 20010504, end: 20060424
  3. MODURETIC 5-50 [Concomitant]
     Indication: ESSENTIAL HYPERTENSION
     Route: 048
     Dates: start: 20060201, end: 20060401
  4. MODURETIC 5-50 [Concomitant]
     Indication: HYPERTENSION
     Dosage: 2.5/25 MG
     Route: 048
     Dates: start: 20060201

REACTIONS (9)
  - BLOOD PRESSURE INCREASED [None]
  - CEREBRAL INFARCTION [None]
  - CEREBRAL ISCHAEMIA [None]
  - COLD SWEAT [None]
  - DISTURBANCE IN ATTENTION [None]
  - NAUSEA [None]
  - PHOTOPHOBIA [None]
  - VERTIGO [None]
  - VOMITING [None]
